FAERS Safety Report 12541217 (Version 1)
Quarter: 2016Q3

REPORT INFORMATION
  Report Type: Spontaneous
  Country: FR (occurrence: FR)
  Receive Date: 20160708
  Receipt Date: 20160708
  Transmission Date: 20161109
  Serious: Yes (Hospitalization)
  Sender: FDA-Public Use
  Company Number: PHHY2016FR093608

PATIENT
  Age: 68 Year
  Sex: Male

DRUGS (3)
  1. TEGRETOL LP [Suspect]
     Active Substance: CARBAMAZEPINE
     Dosage: 1.5 DF (1 DF IN THE MORNING AND 0.5 DF IN THE EVENING), QD
     Route: 048
  2. TEGRETOL LP [Suspect]
     Active Substance: CARBAMAZEPINE
     Indication: EPILEPSY
     Dosage: 2 DF, QD
     Route: 048
  3. TEGRETOL LP [Suspect]
     Active Substance: CARBAMAZEPINE
     Dosage: 2 DF, QD
     Route: 048

REACTIONS (4)
  - Epilepsy [Recovered/Resolved]
  - Sinus bradycardia [Recovered/Resolved]
  - Drug ineffective [Recovered/Resolved]
  - Malaise [Recovered/Resolved]

NARRATIVE: CASE EVENT DATE: 20160127
